FAERS Safety Report 6186530-3 (Version None)
Quarter: 2009Q2

REPORT INFORMATION
  Report Type: 
  Country: None (occurrence: None)
  Receive Date: 20090508
  Receipt Date: 20090427
  Transmission Date: 20091009
  Serious: Yes (Hospitalization)
  Sender: FDA-Public Use
  Company Number: 2009S1007386

PATIENT
  Age: 64 Year
  Sex: Female
  Weight: 73.9363 kg

DRUGS (10)
  1. BUTORPHANOL TARTRATE [Suspect]
     Indication: MIGRAINE
     Dosage: 2 MG; AS NEEDED; NASAL
     Route: 045
     Dates: start: 20090101, end: 20090401
  2. IMITREX /01044801/ [Concomitant]
  3. KLONOPIN [Concomitant]
  4. WELLBUTRIN [Concomitant]
  5. PROVIGIL [Concomitant]
  6. PREMARIN [Concomitant]
  7. PREVACID [Concomitant]
  8. PRINIVIL /00894001/ [Concomitant]
  9. LIDODERM [Concomitant]
  10. NYSTATIN [Concomitant]

REACTIONS (9)
  - ALTERED STATE OF CONSCIOUSNESS [None]
  - DRUG INTERACTION [None]
  - FEELING ABNORMAL [None]
  - FEELING HOT [None]
  - HYPERHIDROSIS [None]
  - PRODUCT QUALITY ISSUE [None]
  - QUADRIPARESIS [None]
  - SINUSITIS [None]
  - URINARY INCONTINENCE [None]
